FAERS Safety Report 6819823-4 (Version None)
Quarter: 2010Q3

REPORT INFORMATION
  Report Type: 
  Country: None (occurrence: None)
  Receive Date: 20100707
  Receipt Date: 20100628
  Transmission Date: 20110219
  Serious: Yes (Other)
  Sender: FDA-Public Use
  Company Number: PHHY2010DE42826

PATIENT
  Age: 58 Year
  Sex: Male

DRUGS (3)
  1. LOCOL [Suspect]
  2. RASILEZ [Concomitant]
  3. RAMIPRIL [Concomitant]

REACTIONS (1)
  - FOOT FRACTURE [None]
